FAERS Safety Report 25031344 (Version 5)
Quarter: 2025Q3

REPORT INFORMATION
  Report Type: Spontaneous
  Country: GB (occurrence: GB)
  Receive Date: 20250303
  Receipt Date: 20250813
  Transmission Date: 20251020
  Serious: Yes (Hospitalization)
  Sender: MYLAN
  Company Number: GB-MYLANLABS-2025M1016974

PATIENT
  Sex: Male

DRUGS (3)
  1. TOBI PODHALER [Suspect]
     Active Substance: TOBRAMYCIN
     Indication: Cystic fibrosis
     Dosage: 112 MILLIGRAM, BID (INHALE THE CONTENTS OF 4 CAPSULES TWICE A DAY)
  2. ELEXACAFTOR\IVACAFTOR\TEZACAFTOR [Concomitant]
     Active Substance: ELEXACAFTOR\IVACAFTOR\TEZACAFTOR
  3. KALYDECO [Concomitant]
     Active Substance: IVACAFTOR

REACTIONS (3)
  - Mental disorder [Unknown]
  - Off label use [Unknown]
  - Treatment noncompliance [Unknown]
